FAERS Safety Report 14780669 (Version 1)
Quarter: 2018Q2

REPORT INFORMATION
  Report Type: Spontaneous
  Country: FR (occurrence: FR)
  Receive Date: 20180419
  Receipt Date: 20180419
  Transmission Date: 20180711
  Serious: Yes (Other)
  Sender: FDA-Public Use
  Company Number: FR-MYLANLABS-2018M1026259

PATIENT
  Age: 50 Year
  Sex: Female

DRUGS (1)
  1. VERAPAMIL [Suspect]
     Active Substance: VERAPAMIL HYDROCHLORIDE
     Indication: PRODUCT USED FOR UNKNOWN INDICATION
     Route: 048

REACTIONS (6)
  - Multiple organ dysfunction syndrome [Unknown]
  - Acute hepatic failure [Unknown]
  - Hypothermia [Unknown]
  - Miosis [Unknown]
  - Cardiogenic shock [Unknown]
  - Coma [Unknown]
